FAERS Safety Report 8339249-4 (Version None)
Quarter: 2012Q2

REPORT INFORMATION
  Report Type: 
  Country: None (occurrence: None)
  Receive Date: 20120507
  Receipt Date: 20120425
  Transmission Date: 20120825
  Serious: Yes (Other)
  Sender: FDA-Public Use
  Company Number: CH-JNJFOC-20120411444

PATIENT
  Age: 52 Year
  Sex: Male

DRUGS (5)
  1. ACTOS [Concomitant]
     Route: 065
     Dates: start: 20070101
  2. RISPERDAL CONSTA [Suspect]
     Indication: SCHIZOPHRENIA, CATATONIC TYPE
     Route: 030
     Dates: start: 20030101
  3. ONGLYZA [Concomitant]
     Route: 065
  4. GLUCOVANCE [Concomitant]
     Route: 065
     Dates: start: 20050101
  5. METFORMIN HCL [Concomitant]
     Route: 065

REACTIONS (4)
  - WEIGHT DECREASED [None]
  - WHITE BLOOD CELL COUNT DECREASED [None]
  - HAEMOGLOBIN DECREASED [None]
  - PLATELET COUNT DECREASED [None]
